FAERS Safety Report 25323040 (Version 1)
Quarter: 2025Q2

REPORT INFORMATION
  Report Type: Spontaneous
  Country: ES (occurrence: ES)
  Receive Date: 20250516
  Receipt Date: 20250516
  Transmission Date: 20250717
  Serious: Yes (Other)
  Sender: AZURITY PHARMACEUTICALS
  Company Number: ES-AZURITY PHARMACEUTICALS, INC.-AZR202505-001342

PATIENT
  Age: 21 Year
  Sex: Male

DRUGS (20)
  1. METHOTREXATE [Suspect]
     Active Substance: METHOTREXATE
     Indication: Diffuse large B-cell lymphoma
     Route: 065
  2. METHOTREXATE [Suspect]
     Active Substance: METHOTREXATE
     Route: 037
  3. METHOTREXATE [Suspect]
     Active Substance: METHOTREXATE
  4. METHOTREXATE [Suspect]
     Active Substance: METHOTREXATE
  5. CYTARABINE [Concomitant]
     Active Substance: CYTARABINE
     Indication: Diffuse large B-cell lymphoma
     Route: 037
  6. CYTARABINE [Concomitant]
     Active Substance: CYTARABINE
  7. CYTARABINE [Concomitant]
     Active Substance: CYTARABINE
  8. HYDROCORTISONE [Concomitant]
     Active Substance: HYDROCORTISONE
     Indication: Diffuse large B-cell lymphoma
     Route: 037
  9. HYDROCORTISONE [Concomitant]
     Active Substance: HYDROCORTISONE
  10. HYDROCORTISONE [Concomitant]
     Active Substance: HYDROCORTISONE
  11. CYCLOPHOSPHAMIDE [Concomitant]
     Active Substance: CYCLOPHOSPHAMIDE
     Indication: Diffuse large B-cell lymphoma
     Route: 065
  12. VINCRISTINE [Concomitant]
     Active Substance: VINCRISTINE
     Indication: Diffuse large B-cell lymphoma
     Route: 065
  13. DOXORUBICIN [Concomitant]
     Active Substance: DOXORUBICIN
     Indication: Diffuse large B-cell lymphoma
     Route: 065
  14. RITUXIMAB [Concomitant]
     Active Substance: RITUXIMAB
     Indication: Diffuse large B-cell lymphoma
     Route: 065
  15. RITUXIMAB [Concomitant]
     Active Substance: RITUXIMAB
     Indication: Therapeutic embolisation
  16. IFOSFAMIDE [Concomitant]
     Active Substance: IFOSFAMIDE
     Indication: Therapeutic embolisation
     Route: 065
  17. CARBOPLATIN [Concomitant]
     Active Substance: CARBOPLATIN
     Indication: Therapeutic embolisation
     Route: 065
  18. ETOPOSIDE [Concomitant]
     Active Substance: ETOPOSIDE
     Indication: Therapeutic embolisation
     Route: 065
  19. DEXAMETHASONE [Concomitant]
     Active Substance: DEXAMETHASONE
     Indication: Diffuse large B-cell lymphoma
     Route: 065
  20. DEXAMETHASONE [Concomitant]
     Active Substance: DEXAMETHASONE
     Route: 065

REACTIONS (3)
  - Neurotoxicity [Recovered/Resolved]
  - Pancytopenia [Recovered/Resolved]
  - Hemiparesis [Recovered/Resolved]
